FAERS Safety Report 5885543-6 (Version None)
Quarter: 2008Q3

REPORT INFORMATION
  Report Type: 
  Country: None (occurrence: None)
  Receive Date: 20080916
  Receipt Date: 20080908
  Transmission Date: 20090109
  Serious: Yes (Other)
  Sender: FDA-Public Use
  Company Number: JP-B.I. PHARMACEUTICALS,INC./RIDGEFIELD-2008-BP-11253NB

PATIENT
  Sex: Female
  Weight: 53 kg

DRUGS (2)
  1. MICARDIS [Suspect]
     Indication: HYPERTENSION
     Dosage: 20MG
     Route: 048
     Dates: start: 20060817, end: 20061212
  2. ADALAT-CR (NEFEDIPINE) [Concomitant]
     Indication: HYPERTENSION
     Dosage: 20MG
     Route: 048

REACTIONS (1)
  - RENAL FAILURE CHRONIC [None]
